FAERS Safety Report 8334465-X (Version None)
Quarter: 2012Q2

REPORT INFORMATION
  Report Type: 
  Country: None (occurrence: None)
  Receive Date: 20120503
  Receipt Date: 20120426
  Transmission Date: 20120825
  Serious: Yes (Disabling, Other)
  Sender: FDA-Public Use
  Company Number: PHHY2011CA106812

PATIENT
  Sex: Female

DRUGS (1)
  1. GILENYA [Suspect]
     Indication: RELAPSING-REMITTING MULTIPLE SCLEROSIS
     Dosage: 0.5 MG, DAILY
     Route: 048
     Dates: start: 20111114, end: 20111206

REACTIONS (8)
  - NAUSEA [None]
  - DIZZINESS [None]
  - DIPLOPIA [None]
  - GAIT DISTURBANCE [None]
  - VERTIGO [None]
  - STRABISMUS [None]
  - FATIGUE [None]
  - BALANCE DISORDER [None]
